FAERS Safety Report 4344893-5 (Version None)
Quarter: 2004Q2

REPORT INFORMATION
  Report Type: 
  Country: None (occurrence: None)
  Receive Date: 20040420
  Receipt Date: 20040804
  Transmission Date: 20050107
  Serious: No
  Sender: FDA-Public Use
  Company Number: 04P-056-0256857-00

PATIENT
  Sex: Female

DRUGS (6)
  1. HUMIRA [Suspect]
     Indication: RHEUMATOID ARTHRITIS
     Dosage: SUBCUTANEOUS
     Route: 058
     Dates: start: 20030201, end: 20040120
  2. HUMIRA [Suspect]
     Indication: RHEUMATOID ARTHRITIS
     Dosage: SUBCUTANEOUS
     Route: 058
     Dates: start: 20040322
  3. AMOXICILLIN AND CLAVULANATE POTASSIUM [Concomitant]
  4. GENTAMICIN [Concomitant]
  5. PRISTINAMYCIN [Concomitant]
  6. OFLOXACIN [Concomitant]

REACTIONS (1)
  - OSTEITIS [None]
